FAERS Safety Report 7219182-1 (Version None)
Quarter: 2011Q1

REPORT INFORMATION
  Report Type: 
  Country: None (occurrence: None)
  Receive Date: 20110103
  Receipt Date: 20101216
  Transmission Date: 20110831
  Serious: Yes (Hospitalization, Other)
  Sender: FDA-Public Use
  Company Number: AUR-APL-2010-03163

PATIENT
  Age: 16 Year
  Sex: Male

DRUGS (4)
  1. FLUOXETINE [Suspect]
     Indication: BIPOLAR DISORDER
     Dosage: 30MG - DAILY
  2. ARIPIPRAZOLE [Suspect]
     Indication: BIPOLAR DISORDER
     Dosage: 10MG - DAILY
  3. LITHIUM CARBONATE [Suspect]
     Indication: BIPOLAR DISORDER
     Dosage: 450MG - TWICE DAILY
  4. CAFFEINE RICH GUM [Suspect]
     Indication: PRODUCT USED FOR UNKNOWN INDICATION
     Dosage: ~1.6G

REACTIONS (10)
  - INCORRECT DOSE ADMINISTERED [None]
  - TACHYPNOEA [None]
  - TACHYCARDIA [None]
  - ANTIPSYCHOTIC DRUG LEVEL BELOW THERAPEUTIC [None]
  - HAEMATURIA [None]
  - SIMPLEX VIRUS TEST POSITIVE [None]
  - RHABDOMYOLYSIS [None]
  - DRUG RASH WITH EOSINOPHILIA AND SYSTEMIC SYMPTOMS [None]
  - EPSTEIN-BARR VIRUS ANTIBODY POSITIVE [None]
  - HEPATITIS [None]
